FAERS Safety Report 5196553-9 (Version None)
Quarter: 2006Q4

REPORT INFORMATION
  Report Type: 
  Country: None (occurrence: None)
  Receive Date: 20061222
  Receipt Date: 20061211
  Transmission Date: 20070319
  Serious: Yes (Hospitalization)
  Sender: FDA-Public Use
  Company Number: MEDI-0004327

PATIENT
  Age: 22 Month
  Weight: 6.6 kg

DRUGS (5)
  1. SYNAGIS [Suspect]
     Indication: ANTIVIRAL PROPHYLAXIS
     Dosage: 100 MG, 1 IN 30 D; INTRAMUSCULAR,  (SEE IMAGE)
     Route: 030
     Dates: start: 20051012, end: 20051012
  2. SYNAGIS [Suspect]
     Indication: ANTIVIRAL PROPHYLAXIS
     Dosage: 100 MG, 1 IN 30 D; INTRAMUSCULAR,  (SEE IMAGE)
     Route: 030
     Dates: start: 20060214, end: 20060214
  3. SYNAGIS [Suspect]
     Indication: ANTIVIRAL PROPHYLAXIS
     Dosage: 100 MG, 1 IN 30 D; INTRAMUSCULAR,  (SEE IMAGE)
     Route: 030
     Dates: start: 20051114
  4. SYNAGIS [Suspect]
     Indication: ANTIVIRAL PROPHYLAXIS
     Dosage: 100 MG, 1 IN 30 D; INTRAMUSCULAR,  (SEE IMAGE)
     Route: 030
     Dates: start: 20051212
  5. SYNAGIS [Suspect]
     Indication: ANTIVIRAL PROPHYLAXIS
     Dosage: 100 MG, 1 IN 30 D; INTRAMUSCULAR,  (SEE IMAGE)
     Route: 030
     Dates: start: 20060114

REACTIONS (7)
  - ATELECTASIS [None]
  - BRONCHIOLITIS [None]
  - DEHYDRATION [None]
  - EAR INFECTION [None]
  - NASOPHARYNGITIS [None]
  - PNEUMONIA [None]
  - URINARY TRACT INFECTION [None]
